FAERS Safety Report 5489700-2 (Version None)
Quarter: 2007Q4

REPORT INFORMATION
  Report Type: 
  Country: None (occurrence: None)
  Receive Date: 20071017
  Receipt Date: 20071017
  Transmission Date: 20080405
  Serious: Yes (Hospitalization)
  Sender: FDA-Public Use
  Company Number: None

PATIENT
  Age: 59 Year
  Sex: Male
  Weight: 77.5651 kg

DRUGS (8)
  1. CISPLATIN [Suspect]
     Indication: NEOPLASM MALIGNANT
     Dosage: 75MG/M2 IV Q3WKS
     Route: 042
     Dates: start: 20071002
  2. TAXOTERE [Suspect]
     Indication: NEOPLASM MALIGNANT
     Dosage: 75MG/M2 IV Q3WKS
     Route: 042
     Dates: start: 20071002
  3. ERBITUX [Suspect]
     Indication: NEOPLASM MALIGNANT
     Dosage: 250MG/M2 WKLY
     Dates: start: 20071002
  4. ERBITUX [Suspect]
     Indication: NEOPLASM MALIGNANT
     Dosage: 250MG/M2 WKLY
     Dates: start: 20071009
  5. DECADRON [Concomitant]
  6. TYLENOL W/ CODEINE NO. 3 [Concomitant]
  7. SWIZZLE [Concomitant]
  8. CIPRO [Concomitant]

REACTIONS (4)
  - DYSPHAGIA [None]
  - MUCOSAL INFLAMMATION [None]
  - PAIN [None]
  - STOMATITIS [None]
